FAERS Safety Report 5991502-5 (Version None)
Quarter: 2008Q4

REPORT INFORMATION
  Report Type: 
  Country: None (occurrence: None)
  Receive Date: 20081211
  Receipt Date: 20081205
  Transmission Date: 20090506
  Serious: Yes (Hospitalization)
  Sender: FDA-Public Use
  Company Number: KR-ASTRAZENECA-2008AC03120

PATIENT
  Age: 75 Year
  Sex: Female

DRUGS (2)
  1. GEFITINIB [Suspect]
     Indication: NON-SMALL CELL LUNG CANCER STAGE IV
     Route: 048
     Dates: start: 20071013
  2. AMLODIPINE [Concomitant]
     Indication: PROPHYLAXIS
     Dates: start: 19970101

REACTIONS (2)
  - RASH [None]
  - SUBDURAL HAEMORRHAGE [None]
